APPROVED DRUG PRODUCT: TOPIRAMATE
Active Ingredient: TOPIRAMATE
Strength: 25MG
Dosage Form/Route: CAPSULE;ORAL
Application: A078877 | Product #002 | TE Code: AB
Applicant: ZYDUS PHARMACEUTICALS USA INC
Approved: Oct 14, 2009 | RLD: No | RS: No | Type: RX